FAERS Safety Report 4999444-9 (Version None)
Quarter: 2006Q2

REPORT INFORMATION
  Report Type: 
  Country: None (occurrence: None)
  Receive Date: 20060509
  Receipt Date: 20060509
  Transmission Date: 20061013
  Serious: Yes (Hospitalization)
  Sender: FDA-Public Use
  Company Number: None

PATIENT
  Age: 22 Year
  Sex: Male
  Weight: 70.5 kg

DRUGS (14)
  1. PHENYTOIN [Suspect]
     Indication: CONVULSION
     Dosage: Q12
     Dates: start: 20051001, end: 20051201
  2. FLUOXETINE [Concomitant]
  3. SINGULAIR [Concomitant]
  4. COZAAR [Concomitant]
  5. CLONIDINE [Concomitant]
  6. SULAR [Concomitant]
  7. METOPROLOL TARTRATE [Concomitant]
  8. SENSIPAR [Concomitant]
  9. BACTRIM DS [Concomitant]
  10. DILANTIN [Concomitant]
  11. ASPIRIN [Concomitant]
  12. CLONAZEPAM [Concomitant]
  13. MINOXIDIL [Concomitant]
  14. IMIPRAMINE [Concomitant]

REACTIONS (6)
  - FATIGUE [None]
  - FEBRILE NEUTROPENIA [None]
  - LETHARGY [None]
  - ORAL INTAKE REDUCED [None]
  - WHITE BLOOD CELL COUNT DECREASED [None]
  - WHITE BLOOD CELL COUNT INCREASED [None]
